FAERS Safety Report 4860823-1 (Version None)
Quarter: 2005Q4

REPORT INFORMATION
  Report Type: 
  Country: None (occurrence: None)
  Receive Date: 20051216
  Receipt Date: 20051202
  Transmission Date: 20060501
  Serious: Yes (Hospitalization)
  Sender: FDA-Public Use
  Company Number: FR200512000730

PATIENT
  Age: 47 Year
  Sex: Male
  Weight: 130 kg

DRUGS (6)
  1. ZYPREXA [Suspect]
     Indication: DEPRESSION
     Dosage: 5 MG, DAILY (1/D), ORAL
     Route: 048
     Dates: start: 20050515, end: 20050805
  2. EFFEXOR SLOW RELEASE (VENLAFAXINE HYDROCHLORIDE) [Concomitant]
  3. TEGRETOL [Concomitant]
  4. TRILEPTAL [Concomitant]
  5. ATACAND /SWE/(CANDESARTAN CILEXETIL) [Concomitant]
  6. XANAX /USA(ALPRAZOLAM) [Concomitant]

REACTIONS (11)
  - ALANINE AMINOTRANSFERASE INCREASED [None]
  - ANAEMIA [None]
  - ASPARTATE AMINOTRANSFERASE INCREASED [None]
  - BLOOD ALKALINE PHOSPHATASE INCREASED [None]
  - DRUG RASH WITH EOSINOPHILIA AND SYSTEMIC SYMPTOMS [None]
  - FACE OEDEMA [None]
  - GAMMA-GLUTAMYLTRANSFERASE INCREASED [None]
  - LIVER DISORDER [None]
  - LYMPHOPENIA [None]
  - PROTEINURIA [None]
  - RENAL TUBULAR DISORDER [None]
